FAERS Safety Report 7715865-5 (Version None)
Quarter: 2011Q3

REPORT INFORMATION
  Report Type: 
  Country: None (occurrence: None)
  Receive Date: 20110829
  Receipt Date: 20110829
  Transmission Date: 20111222
  Serious: Yes (Hospitalization, Other)
  Sender: FDA-Public Use
  Company Number: None

PATIENT
  Sex: Female
  Weight: 97.522 kg

DRUGS (2)
  1. PREDNISONE [Suspect]
     Indication: AUTOIMMUNE HEPATITIS
     Dosage: 3 TABLETS
     Route: 048
     Dates: start: 20110709, end: 20110827
  2. PREDNISONE [Suspect]
     Indication: JAUNDICE
     Dosage: 3 TABLETS
     Route: 048
     Dates: start: 20110709, end: 20110827

REACTIONS (5)
  - TONGUE BITING [None]
  - FATIGUE [None]
  - AMNESIA [None]
  - SOMNOLENCE [None]
  - GRAND MAL CONVULSION [None]
